FAERS Safety Report 12931293 (Version 1)
Quarter: 2016Q4

REPORT INFORMATION
  Report Type: Spontaneous
  Country: US (occurrence: US)
  Receive Date: 20161110
  Receipt Date: 20161110
  Transmission Date: 20170207
  Serious: No
  Sender: FDA-Public Use
  Company Number: US-JAZZ-2016-US-018226

PATIENT
  Sex: Female

DRUGS (30)
  1. CLONAZEPAM. [Concomitant]
     Active Substance: CLONAZEPAM
  2. PROVIGIL [Concomitant]
     Active Substance: MODAFINIL
  3. REQUIP [Concomitant]
     Active Substance: ROPINIROLE HYDROCHLORIDE
  4. XYREM [Suspect]
     Active Substance: SODIUM OXYBATE
     Dosage: 4.5 G, BID
     Route: 048
     Dates: start: 200611
  5. VITAMIN D3 [Concomitant]
     Active Substance: CHOLECALCIFEROL
  6. AMITRIPTYLINE HCL [Concomitant]
     Active Substance: AMITRIPTYLINE
  7. RITALIN [Concomitant]
     Active Substance: METHYLPHENIDATE HYDROCHLORIDE
  8. PROVENTIL HFA                      /00139501/ [Concomitant]
  9. VITAMIN D                          /00107901/ [Concomitant]
     Active Substance: ERGOCALCIFEROL
  10. NEURONTIN [Concomitant]
     Active Substance: GABAPENTIN
  11. DHEA [Concomitant]
     Active Substance: PRASTERONE
  12. XYREM [Suspect]
     Active Substance: SODIUM OXYBATE
     Indication: FIBROMYALGIA
     Dosage: 3 G, BID
     Route: 048
     Dates: start: 200306, end: 200511
  13. CYMBALTA [Concomitant]
     Active Substance: DULOXETINE HYDROCHLORIDE
  14. ZYRTEC [Concomitant]
     Active Substance: CETIRIZINE HYDROCHLORIDE
  15. NUVARING [Concomitant]
     Active Substance: ETHINYL ESTRADIOL\ETONOGESTREL
  16. PHENERGAN [Concomitant]
     Active Substance: PROMETHAZINE HYDROCHLORIDE
  17. QNASL [Concomitant]
     Active Substance: BECLOMETHASONE DIPROPIONATE
  18. DIAZIDE                            /00007602/ [Concomitant]
     Active Substance: HYDRALAZINE HYDROCHLORIDE
  19. TEMAZEPAM. [Concomitant]
     Active Substance: TEMAZEPAM
  20. NEXIUM [Concomitant]
     Active Substance: ESOMEPRAZOLE MAGNESIUM
  21. XYREM [Suspect]
     Active Substance: SODIUM OXYBATE
     Dosage: 3.5 G, SECOND DOSE
     Route: 048
     Dates: start: 200511, end: 200611
  22. LODRANE D [Concomitant]
     Active Substance: BROMPHENIRAMINE MALEATE\PSEUDOEPHEDRINE HYDROCHLORIDE
  23. VYVANSE [Concomitant]
     Active Substance: LISDEXAMFETAMINE DIMESYLATE
  24. LUVOX CR [Concomitant]
     Active Substance: FLUVOXAMINE MALEATE
  25. MULTIVITAMINS                      /00116001/ [Concomitant]
  26. ALPRAZOLAM. [Concomitant]
     Active Substance: ALPRAZOLAM
  27. VIIBRYD [Concomitant]
     Active Substance: VILAZODONE HYDROCHLORIDE
  28. DEPAKOTE ER [Concomitant]
     Active Substance: DIVALPROEX SODIUM
  29. XYREM [Suspect]
     Active Substance: SODIUM OXYBATE
     Dosage: 4.5 G, FIRST DOSE
     Route: 048
     Dates: start: 200511, end: 200611
  30. CIPRO [Concomitant]
     Active Substance: CIPROFLOXACIN HYDROCHLORIDE

REACTIONS (1)
  - Arthritis [Unknown]
